FAERS Safety Report 6040873-2 (Version None)
Quarter: 2009Q1

REPORT INFORMATION
  Report Type: 
  Country: None (occurrence: None)
  Receive Date: 20090116
  Receipt Date: 20080819
  Transmission Date: 20090719
  Serious: No
  Sender: FDA-Public Use
  Company Number: US-BRISTOL-MYERS SQUIBB COMPANY-14231567

PATIENT
  Age: 28 Year
  Sex: Female
  Weight: 54 kg

DRUGS (2)
  1. ABILIFY [Suspect]
     Indication: BIPOLAR DISORDER
     Route: 048
     Dates: start: 20080501, end: 20080522
  2. DEPAKOTE ER [Suspect]
     Indication: BIPOLAR DISORDER
     Route: 048
     Dates: start: 20080101, end: 20080601

REACTIONS (5)
  - DIZZINESS [None]
  - MALAISE [None]
  - PALPITATIONS [None]
  - PREGNANCY [None]
  - TREMOR [None]
